FAERS Safety Report 5431961-X (Version None)
Quarter: 2007Q3

REPORT INFORMATION
  Report Type: 
  Country: None (occurrence: None)
  Receive Date: 20070731
  Receipt Date: 20070507
  Transmission Date: 20080115
  Serious: No
  Sender: FDA-Public Use
  Company Number: US200705001974

PATIENT
  Sex: Female

DRUGS (3)
  1. BYETTA [Suspect]
     Dosage: 5 UG, SUBCUTANEOUS   10 UG, SUBCUTANEOUS
     Route: 058
     Dates: start: 20070401, end: 20070406
  2. BYETTA [Suspect]
     Dosage: 5 UG, SUBCUTANEOUS   10 UG, SUBCUTANEOUS
     Route: 058
     Dates: start: 20070507
  3. EXENATIDE [Suspect]

REACTIONS (3)
  - FATIGUE [None]
  - NAUSEA [None]
  - VOMITING [None]
